FAERS Safety Report 24411251 (Version 3)
Quarter: 2025Q3

REPORT INFORMATION
  Report Type: Spontaneous
  Country: EU (occurrence: EU)
  Receive Date: 20241008
  Receipt Date: 20250802
  Transmission Date: 20251021
  Serious: Yes (Life-Threatening)
  Sender: ALEXION PHARMACEUTICALS
  Company Number: 2024CP13227

PATIENT
  Age: 60 Year
  Sex: Female

DRUGS (1)
  1. QUETIAPINE FUMARATE [Suspect]
     Active Substance: QUETIAPINE FUMARATE

REACTIONS (1)
  - Food interaction [Unknown]
